FAERS Safety Report 6027527-3 (Version None)
Quarter: 2009Q1

REPORT INFORMATION
  Report Type: 
  Country: None (occurrence: None)
  Receive Date: 20090105
  Receipt Date: 20081222
  Transmission Date: 20090719
  Serious: Yes (Death, Other)
  Sender: FDA-Public Use
  Company Number: AU-CELGENEUS-008-20785-08111495

PATIENT
  Sex: Male
  Weight: 60 kg

DRUGS (11)
  1. THALIDOMIDE [Suspect]
     Indication: DRUG USE FOR UNKNOWN INDICATION
     Route: 048
     Dates: start: 20081114, end: 20081117
  2. THALIDOMIDE [Suspect]
     Route: 048
     Dates: start: 20081118, end: 20081120
  3. DEXAMETHASONE [Suspect]
     Indication: MULTIPLE MYELOMA
     Route: 048
     Dates: start: 20081112, end: 20081116
  4. ATORVASTATIN CALCIUM [Concomitant]
     Indication: DRUG USE FOR UNKNOWN INDICATION
  5. ESOMEPRAZOLE MAGNESIUM [Concomitant]
     Indication: REFLUX GASTRITIS
     Route: 065
  6. OSTELIN [Concomitant]
  7. FRAGMIN [Concomitant]
     Indication: DRUG USE FOR UNKNOWN INDICATION
     Route: 048
  8. PRAZSOIN HCL [Concomitant]
     Indication: HYPERTENSION
     Route: 048
  9. ASPIRIN [Concomitant]
     Indication: DRUG USE FOR UNKNOWN INDICATION
     Route: 048
  10. METOPROLOL [Concomitant]
     Indication: HYPERTENSION
     Route: 065
  11. CALCIUM CARBONATE [Concomitant]
     Route: 065

REACTIONS (4)
  - CARDIAC ARREST [None]
  - DUODENITIS [None]
  - PNEUMONIA ASPIRATION [None]
  - RESPIRATORY FAILURE [None]
